FAERS Safety Report 19178944 (Version 1)
Quarter: 2021Q2

REPORT INFORMATION
  Report Type: Spontaneous
  Country: US (occurrence: US)
  Receive Date: 20210423
  Receipt Date: 20210423
  Transmission Date: 20210717
  Serious: No
  Sender: FDA-Public Use
  Company Number: None

PATIENT
  Sex: Female

DRUGS (1)
  1. AMBRISENTAN 10MG ZYDUS PHARMACEUTICALS [Suspect]
     Active Substance: AMBRISENTAN
     Indication: PULMONARY ARTERIAL HYPERTENSION
     Route: 048
     Dates: start: 20201202

REACTIONS (13)
  - Pelvic pain [None]
  - Insomnia [None]
  - Back pain [None]
  - Malaise [None]
  - Pain in extremity [None]
  - Headache [None]
  - Ocular icterus [None]
  - Arthralgia [None]
  - Emotional distress [None]
  - Hepatic pain [None]
  - Dyspepsia [None]
  - Abdominal distension [None]
  - Pain [None]
